FAERS Safety Report 6265903-4 (Version None)
Quarter: 2009Q3

REPORT INFORMATION
  Report Type: 
  Country: None (occurrence: None)
  Receive Date: 20090713
  Receipt Date: 20090630
  Transmission Date: 20100115
  Serious: Yes (Other)
  Sender: FDA-Public Use
  Company Number: PHHY2009BR27190

PATIENT
  Age: 84 Year
  Sex: Female

DRUGS (7)
  1. DIOVAN [Suspect]
     Indication: HYPERTENSION
     Dosage: 1 DF, BID
  2. CALCIM-SANDOZ FORTE (NCH) [Suspect]
     Dosage: 1 DF, BID
     Route: 048
  3. GLYCIFER [Concomitant]
     Indication: DIABETES MELLITUS
     Dosage: 1 TABLET (700 MG) A DAY
  4. PURAN T4 [Concomitant]
     Indication: DIABETES MELLITUS
     Dosage: 1 TABLET (50 MG) A DAY
  5. GLIMEPIRIDE [Concomitant]
     Indication: DIABETES MELLITUS
     Dosage: 1 TABLET (2 MG) A DAY
  6. ACETYLSALICYLIC ACID SRT [Concomitant]
     Dosage: 1 TABLET A DAY
  7. RETINOL ACETATE [Concomitant]
     Indication: BONE DISORDER
     Dosage: 40 DROPS ONCE A WEEK

REACTIONS (10)
  - BACK PAIN [None]
  - BENIGN LUNG NEOPLASM [None]
  - BLOOD PRESSURE INADEQUATELY CONTROLLED [None]
  - BRAIN NEOPLASM [None]
  - DEPRESSION [None]
  - DIZZINESS [None]
  - HEADACHE [None]
  - LABYRINTHITIS [None]
  - PAIN IN EXTREMITY [None]
  - PARKINSON'S DISEASE [None]
